FAERS Safety Report 12780053 (Version 1)
Quarter: 2016Q3

REPORT INFORMATION
  Report Type: Spontaneous
  Country: US (occurrence: US)
  Receive Date: 20160925
  Receipt Date: 20160925
  Transmission Date: 20161109
  Serious: No
  Sender: FDA-Public Use
  Company Number: None

PATIENT
  Age: 51 Year
  Sex: Male
  Weight: 94.5 kg

DRUGS (9)
  1. MV [Concomitant]
  2. IBUPROFEN. [Concomitant]
     Active Substance: IBUPROFEN
  3. VITAMIN D [Concomitant]
     Active Substance: CHOLECALCIFEROL
  4. ASA [Concomitant]
     Active Substance: ASPIRIN
  5. TESTOSTERONE. [Concomitant]
     Active Substance: TESTOSTERONE
  6. FOCUS FACTOR [Concomitant]
  7. TYLENOL [Concomitant]
     Active Substance: ACETAMINOPHEN
  8. FISH OIL [Concomitant]
     Active Substance: FISH OIL
  9. HAIR REGROWTH TREATMENT [Suspect]
     Active Substance: MINOXIDIL
     Indication: ALOPECIA
     Route: 061
     Dates: start: 20160815, end: 20160919

REACTIONS (5)
  - Alopecia [None]
  - Product quality issue [None]
  - Product tampering [None]
  - Dermatitis [None]
  - No reaction on previous exposure to drug [None]

NARRATIVE: CASE EVENT DATE: 20160901
